FAERS Safety Report 8359880-X (Version None)
Quarter: 2012Q2

REPORT INFORMATION
  Report Type: 
  Country: None (occurrence: None)
  Receive Date: 20120514
  Receipt Date: 20120514
  Transmission Date: 20120825
  Serious: Yes (Life-Threatening, Hospitalization)
  Sender: FDA-Public Use
  Company Number: None

PATIENT
  Age: 45 Year
  Sex: Female
  Weight: 79.3795 kg

DRUGS (6)
  1. AMLODIPINE BESYLATE [Concomitant]
  2. BIAXIN [Suspect]
     Indication: NASOPHARYNGITIS
     Dosage: 2 ONCE DAILY
     Dates: start: 20061206
  3. TRAMADOL HCL [Concomitant]
  4. DEXILANT [Concomitant]
  5. CIPROFLOXACIN HCL [Suspect]
     Indication: NASOPHARYNGITIS
     Dates: start: 20061208
  6. PREMARIN [Concomitant]

REACTIONS (3)
  - DRUG HYPERSENSITIVITY [None]
  - THROAT TIGHTNESS [None]
  - SWELLING [None]
